FAERS Safety Report 7426971-7 (Version None)
Quarter: 2011Q2

REPORT INFORMATION
  Report Type: 
  Country: None (occurrence: None)
  Receive Date: 20110420
  Receipt Date: 20110418
  Transmission Date: 20111010
  Serious: No
  Sender: FDA-Public Use
  Company Number: US-TEVA-277286USA

PATIENT
  Sex: Female

DRUGS (1)
  1. ALBUTEROL SULATE [Suspect]
     Route: 055

REACTIONS (1)
  - DRUG INEFFECTIVE [None]
